FAERS Safety Report 5099899-8 (Version None)
Quarter: 2006Q3

REPORT INFORMATION
  Report Type: 
  Country: None (occurrence: None)
  Receive Date: 20060908
  Receipt Date: 20060216
  Transmission Date: 20061208
  Serious: Yes (Hospitalization)
  Sender: FDA-Public Use
  Company Number: HQWYE908721FEB06

PATIENT
  Sex: Female
  Weight: 43 kg

DRUGS (12)
  1. ENBREL [Suspect]
     Indication: RHEUMATOID ARTHRITIS
     Route: 058
     Dates: start: 20050617, end: 20050706
  2. ENBREL [Suspect]
     Route: 058
     Dates: start: 20050622, end: 20050706
  3. SULFASALAZINE [Concomitant]
     Route: 048
  4. PERSANTIN [Concomitant]
  5. MUCOSOLVAN [Concomitant]
  6. ALLOPURINOL [Concomitant]
  7. PARIET [Concomitant]
  8. MICARDIS [Concomitant]
  9. THYRADIN [Concomitant]
  10. NORVASC [Concomitant]
  11. ISCOTIN [Concomitant]
     Route: 048
     Dates: start: 20050616
  12. PREDONINE [Concomitant]
     Indication: RHEUMATOID ARTHRITIS

REACTIONS (3)
  - BRONCHITIS CHRONIC [None]
  - CONDITION AGGRAVATED [None]
  - PYREXIA [None]
